FAERS Safety Report 4384694-5 (Version None)
Quarter: 2004Q2

REPORT INFORMATION
  Report Type: 
  Country: None (occurrence: None)
  Receive Date: 20040625
  Receipt Date: 20040224
  Transmission Date: 20050107
  Serious: Yes (Death, Other)
  Sender: FDA-Public Use
  Company Number: PHNR2004AU00698

PATIENT
  Age: 34 Year
  Sex: Female
  Weight: 125 kg

DRUGS (6)
  1. CLOZARIL [Suspect]
     Indication: SCHIZOPHRENIA
     Dosage: 800 MG, QD
     Route: 048
     Dates: start: 20011009
  2. EFFEXOR [Interacting]
  3. TOPAMAX [Concomitant]
  4. SERENASE [Concomitant]
  5. BENZOTROPINE [Concomitant]
     Dosage: UNK, PRN
  6. WARFARIN SODIUM [Concomitant]

REACTIONS (4)
  - ASTHMA [None]
  - DRUG LEVEL INCREASED [None]
  - DRUG TOXICITY [None]
  - WHEEZING [None]
